FAERS Safety Report 18747438 (Version 2)
Quarter: 2021Q1

REPORT INFORMATION
  Report Type: Spontaneous
  Country: US (occurrence: US)
  Receive Date: 20210115
  Receipt Date: 20210119
  Transmission Date: 20210419
  Serious: No
  Sender: FDA-Public Use
  Company Number: US-PFIZER INC-2021022240

PATIENT
  Age: 51 Year
  Sex: Female

DRUGS (2)
  1. TYLENOL [Concomitant]
     Active Substance: ACETAMINOPHEN
     Indication: INFLUENZA LIKE ILLNESS
     Dosage: 1 G (ROUND THE CLOCK 1 GRAM TYLENOL ALTERNATE WITH 500 MG IBUPROFEN FOR 3 DAYS EVERY 6 HRS FOR DOSE
  2. IBUPROFEN. [Suspect]
     Active Substance: IBUPROFEN
     Indication: INFLUENZA LIKE ILLNESS
     Dosage: 500 MG ROUND THE CLOCK 1 GRAM TYLENOL ALTERNATE WITH 500 MG IBUPROFEN FOR 3 DAYS EVERY 6 HRS FOR DOS

REACTIONS (2)
  - Drug ineffective [Unknown]
  - Product use issue [Unknown]
